FAERS Safety Report 6323942-9 (Version None)
Quarter: 2009Q3

REPORT INFORMATION
  Report Type: 
  Country: None (occurrence: None)
  Receive Date: 20090824
  Receipt Date: 20090819
  Transmission Date: 20100115
  Serious: Yes (Hospitalization)
  Sender: FDA-Public Use
  Company Number: A0796719A

PATIENT
  Sex: Female
  Weight: 100 kg

DRUGS (2)
  1. TYKERB [Suspect]
     Dosage: 1000MG PER DAY
     Route: 048
     Dates: start: 20090626
  2. XELODA [Concomitant]
     Dosage: 150MG TWICE PER DAY
     Route: 065
     Dates: start: 20090601, end: 20090701

REACTIONS (7)
  - DIARRHOEA [None]
  - EPISTAXIS [None]
  - ERYTHEMA [None]
  - ORAL PAIN [None]
  - PULMONARY EMBOLISM [None]
  - PULMONARY THROMBOSIS [None]
  - STOMATITIS [None]
